FAERS Safety Report 24199823 (Version 1)
Quarter: 2024Q3

REPORT INFORMATION
  Report Type: Spontaneous
  Country: PL (occurrence: PL)
  Receive Date: 20240812
  Receipt Date: 20240812
  Transmission Date: 20241016
  Serious: Yes (Death)
  Sender: ACCORD
  Company Number: None

PATIENT
  Age: 74 Year
  Sex: Male
  Weight: 70 kg

DRUGS (11)
  1. OXALIPLATIN [Suspect]
     Active Substance: OXALIPLATIN
     Indication: Product used for unknown indication
     Dosage: 5 MG/ML
  2. FLUOROURACIL [Suspect]
     Active Substance: FLUOROURACIL
     Indication: Product used for unknown indication
     Dosage: 50 MG/ML
  3. XARELTO [Concomitant]
     Active Substance: RIVAROXABAN
  4. DIGOXIN [Concomitant]
     Active Substance: DIGOXIN
  5. FLUTAM [Concomitant]
  6. METOPROLOL TARTRATE [Concomitant]
     Active Substance: METOPROLOL TARTRATE
  7. TORSEMIDE [Concomitant]
     Active Substance: TORSEMIDE
  8. EPLERENONE [Concomitant]
     Active Substance: EPLERENONE
  9. ATORVASTATIN [Concomitant]
     Active Substance: ATORVASTATIN
  10. TACLAR [Concomitant]
  11. ERDOSTEINE [Concomitant]
     Active Substance: ERDOSTEINE

REACTIONS (1)
  - Interstitial lung disease [Fatal]

NARRATIVE: CASE EVENT DATE: 20240603
